FAERS Safety Report 7183826-3 (Version None)
Quarter: 2010Q4

REPORT INFORMATION
  Report Type: 
  Country: None (occurrence: None)
  Receive Date: 20101222
  Receipt Date: 20100222
  Transmission Date: 20110411
  Serious: Yes (Hospitalization)
  Sender: FDA-Public Use
  Company Number: FR-ROCHE-687251

PATIENT
  Age: 45 Year
  Sex: Male

DRUGS (15)
  1. SAQUINAVIR [Suspect]
     Indication: HIV INFECTION
     Route: 065
     Dates: start: 20031001
  2. NELFINAVIR [Suspect]
     Indication: HIV INFECTION
     Route: 065
     Dates: start: 19991101
  3. NELFINAVIR [Suspect]
     Route: 065
     Dates: start: 20010701
  4. ZIDOVUDINE [Suspect]
     Indication: HIV INFECTION
     Route: 065
     Dates: start: 20010701
  5. ZIDOVUDINE [Suspect]
     Route: 065
     Dates: start: 20020701
  6. DIDANOSINE [Suspect]
     Indication: HIV INFECTION
     Route: 065
     Dates: start: 19991101
  7. DIDANOSINE [Suspect]
     Route: 065
     Dates: start: 20010701
  8. DIDANOSINE [Suspect]
     Route: 065
     Dates: start: 20020701
  9. STAVUDINE [Suspect]
     Indication: HIV INFECTION
     Route: 065
     Dates: start: 19991101
  10. LAMIVUDINE [Suspect]
     Indication: HIV INFECTION
     Route: 065
     Dates: start: 20031001
  11. INDINAVIR [Suspect]
     Indication: HIV INFECTION
     Route: 065
     Dates: start: 20020701
  12. RITONAVIR [Suspect]
     Indication: HIV INFECTION
     Route: 065
     Dates: start: 20031001
  13. RITONAVIR [Suspect]
     Route: 065
     Dates: start: 20040701
  14. ABACAVIR [Suspect]
     Indication: HIV INFECTION
     Route: 065
     Dates: start: 20031001
  15. LOPINAVIR [Suspect]
     Indication: HIV INFECTION
     Route: 065
     Dates: start: 20040701

REACTIONS (1)
  - OSTEONECROSIS [None]
